FAERS Safety Report 26162713 (Version 1)
Quarter: 2025Q4

REPORT INFORMATION
  Report Type: Spontaneous
  Country: US (occurrence: US)
  Receive Date: 20251216
  Receipt Date: 20251216
  Transmission Date: 20260118
  Serious: No
  Sender: DR REDDYS
  Company Number: US-DRL-USA-USA/2025/11/017932

PATIENT
  Age: 87 Year
  Sex: Female

DRUGS (1)
  1. CLONIDINE TRANSDERMAL SYSTEM USP, 0.2 MG/DAY [Suspect]
     Active Substance: CLONIDINE
     Indication: Hypertension
     Dosage: SERIAL NO: JBP37E5VQES2
     Route: 062

REACTIONS (1)
  - Drug ineffective [Unknown]
